FAERS Safety Report 20889903 (Version 5)
Quarter: 2022Q4

REPORT INFORMATION
  Report Type: Spontaneous
  Country: CA (occurrence: CA)
  Receive Date: 20220530
  Receipt Date: 20221125
  Transmission Date: 20230112
  Serious: Yes (Other)
  Sender: FDA-Public Use
  Company Number: CA-CELLTRION INC.-2022CA007072

PATIENT

DRUGS (9)
  1. INFLECTRA [Suspect]
     Active Substance: INFLIXIMAB-DYYB
     Indication: Psoriatic arthropathy
     Dosage: 200 MG, EVERY 8 WEEKS
     Route: 042
     Dates: start: 20220320
  2. INFLECTRA [Suspect]
     Active Substance: INFLIXIMAB-DYYB
     Dosage: 200 MG, WEEK 1 AND 2
     Route: 041
     Dates: start: 20220320
  3. INFLECTRA [Suspect]
     Active Substance: INFLIXIMAB-DYYB
     Dosage: 200 MG, WEEK 1 AND 2
     Route: 041
     Dates: start: 20220406
  4. INFLECTRA [Suspect]
     Active Substance: INFLIXIMAB-DYYB
     Dosage: 200 MG, WEEK 1 AND 2 FREQUENCY: 8 WEEKS
     Route: 042
     Dates: start: 20220413
  5. INFLECTRA [Suspect]
     Active Substance: INFLIXIMAB-DYYB
     Dosage: 200 MG, WEEK 1 AND 2  FREQUENCY: 8 WEEKS
     Route: 042
     Dates: start: 20220414
  6. INFLECTRA [Suspect]
     Active Substance: INFLIXIMAB-DYYB
     Dosage: 200 MG, EVERY 6 WEEKS
     Route: 042
     Dates: start: 20220414
  7. INFLECTRA [Suspect]
     Active Substance: INFLIXIMAB-DYYB
     Dosage: 200 MG, FREQUENCY: 8 WEEKS
     Route: 042
     Dates: start: 20220519
  8. INFLECTRA [Suspect]
     Active Substance: INFLIXIMAB-DYYB
     Dosage: 200 MG, EVERY 6 WEEKS
     Route: 042
     Dates: start: 20220714
  9. INFLECTRA [Suspect]
     Active Substance: INFLIXIMAB-DYYB
     Dosage: 200 MG, EVERY 6 WEEKS
     Route: 042
     Dates: start: 20220908

REACTIONS (6)
  - Sinusitis bacterial [Not Recovered/Not Resolved]
  - Loss of personal independence in daily activities [Unknown]
  - Therapeutic response shortened [Unknown]
  - Condition aggravated [Unknown]
  - Off label use [Unknown]
  - Off label use [Unknown]

NARRATIVE: CASE EVENT DATE: 20220101
